FAERS Safety Report 15893276 (Version 1)
Quarter: 2019Q1

REPORT INFORMATION
  Report Type: Spontaneous
  Country: PL (occurrence: PL)
  Receive Date: 20190130
  Receipt Date: 20190130
  Transmission Date: 20190417
  Serious: Yes (Hospitalization)
  Sender: FDA-Public Use
  Company Number: PL-MYLANLABS-2019M1008645

PATIENT
  Age: 51 Year
  Weight: 60 kg

DRUGS (2)
  1. KLACID [Suspect]
     Active Substance: CLARITHROMYCIN
     Indication: COUGH
     Dosage: 500 MILLIGRAM, QD
     Route: 048
     Dates: start: 201712
  2. KLACID [Suspect]
     Active Substance: CLARITHROMYCIN
     Indication: MALAISE

REACTIONS (4)
  - Mouth ulceration [Recovering/Resolving]
  - Dysphagia [Recovering/Resolving]
  - Conjunctivitis [Recovering/Resolving]
  - Blood blister [Recovering/Resolving]
